FAERS Safety Report 12478644 (Version 1)
Quarter: 2016Q2

REPORT INFORMATION
  Report Type: Spontaneous
  Country: US (occurrence: US)
  Receive Date: 20160619
  Receipt Date: 20160619
  Transmission Date: 20160815
  Serious: No
  Sender: FDA-Public Use
  Company Number: US-ASTRAZENECA-2016SE50396

PATIENT
  Sex: Male

DRUGS (2)
  1. RHINOCORT [Suspect]
     Active Substance: BUDESONIDE
     Route: 045
  2. RHINOCORT [Suspect]
     Active Substance: BUDESONIDE
     Dosage: UNKNOWN
     Route: 045

REACTIONS (1)
  - Headache [Unknown]
